FAERS Safety Report 18111539 (Version 1)
Quarter: 2020Q3

REPORT INFORMATION
  Report Type: Report from Study
  Country: BR (occurrence: BR)
  Receive Date: 20200804
  Receipt Date: 20200804
  Transmission Date: 20201103
  Serious: Yes (Hospitalization)
  Sender: FDA-Public Use
  Company Number: NVSC2020BR215304

PATIENT
  Age: 38 Year
  Sex: Male

DRUGS (1)
  1. ENTRESTO [Suspect]
     Active Substance: SACUBITRIL\VALSARTAN
     Indication: CARDIAC FAILURE
     Dosage: UNK (STARTED AROUND 2 MONTHS AGO)
     Route: 065

REACTIONS (8)
  - Cardiomegaly [Not Recovered/Not Resolved]
  - Swelling [Recovering/Resolving]
  - Swelling face [Recovered/Resolved]
  - Oedema [Recovered/Resolved]
  - Insomnia [Unknown]
  - Abdominal distension [Recovered/Resolved]
  - Fatigue [Recovered/Resolved]
  - Peripheral swelling [Recovered/Resolved]

NARRATIVE: CASE EVENT DATE: 202005
